FAERS Safety Report 5293264-6 (Version None)
Quarter: 2007Q2

REPORT INFORMATION
  Report Type: 
  Country: None (occurrence: None)
  Receive Date: 20070411
  Receipt Date: 20070405
  Transmission Date: 20071010
  Serious: Yes (Death, Life-Threatening)
  Sender: FDA-Public Use
  Company Number: 2007AP00070

PATIENT
  Age: 29169 Day
  Sex: Female
  Weight: 51 kg

DRUGS (21)
  1. IRESSA [Suspect]
     Indication: LUNG ADENOCARCINOMA RECURRENT
     Route: 048
     Dates: start: 20061120, end: 20061215
  2. CONIEL [Concomitant]
     Route: 048
     Dates: start: 20051216, end: 20061215
  3. LIPITOR [Concomitant]
     Route: 048
     Dates: start: 20051216, end: 20061215
  4. BISOLVON [Concomitant]
     Route: 048
     Dates: start: 20051216, end: 20061215
  5. SEFTAC [Concomitant]
     Route: 048
     Dates: start: 20051216, end: 20061215
  6. UFT [Concomitant]
     Route: 048
     Dates: start: 20051216, end: 20061215
  7. MYSLEE [Concomitant]
     Route: 048
     Dates: start: 20051216, end: 20061215
  8. RIZE [Concomitant]
     Route: 048
     Dates: start: 20061208, end: 20061215
  9. NEOPAREN [Concomitant]
     Route: 041
     Dates: start: 20061208, end: 20061213
  10. PREDONINE [Concomitant]
     Route: 041
     Dates: start: 20061208, end: 20061213
  11. GASTER [Concomitant]
     Route: 041
     Dates: start: 20061208, end: 20061213
  12. SOLMALT [Concomitant]
     Route: 041
     Dates: start: 20061208, end: 20061213
  13. NEUTROPIN [Concomitant]
     Route: 041
     Dates: start: 20061208, end: 20061213
  14. CODEINE PHOSPHATE [Concomitant]
     Route: 048
     Dates: end: 20061215
  15. KAMAG G [Concomitant]
     Route: 048
     Dates: end: 20061215
  16. ENSURE [Concomitant]
     Route: 048
     Dates: end: 20061215
  17. KRESTIN [Concomitant]
  18. IRINOTECAN HCL [Concomitant]
     Dates: start: 20060911
  19. IRINOTECAN HCL [Concomitant]
     Dosage: REDUCED DOSAGE FROM SEPTEMBER 2006
     Dates: start: 20061018, end: 20061018
  20. CISPLATIN [Concomitant]
     Dosage: REDUCED DOSAGE FROM SEPTEMBER 2006
     Dates: start: 20060911
  21. CISPLATIN [Concomitant]
     Dates: start: 20061018, end: 20061018

REACTIONS (2)
  - CYSTITIS HAEMORRHAGIC [None]
  - PLATELET COUNT DECREASED [None]
